FAERS Safety Report 8521759 (Version 3)
Quarter: 2017Q3

REPORT INFORMATION
  Report Type: Spontaneous
  Country: DE (occurrence: DE)
  Receive Date: 20120419
  Receipt Date: 20170718
  Transmission Date: 20171128
  Serious: Yes (Hospitalization)
  Sender: FDA-Public Use
  Company Number: DE-ROCHE-1058679

PATIENT
  Age: 47 Year
  Sex: Male
  Weight: 79 kg

DRUGS (7)
  1. PANTOPRAZOL [Concomitant]
     Active Substance: PANTOPRAZOLE SODIUM
     Route: 065
  2. COPEGUS [Suspect]
     Active Substance: RIBAVIRIN
     Indication: CHRONIC HEPATITIS C
     Route: 048
     Dates: start: 20111220
  3. SPIROBETA [Concomitant]
     Active Substance: SPIRONOLACTONE
     Route: 065
  4. TELAPREVIR [Suspect]
     Active Substance: TELAPREVIR
     Indication: CHRONIC HEPATITIS C
     Route: 048
     Dates: start: 20111220, end: 20120312
  5. RISPERIDON [Concomitant]
     Active Substance: RISPERIDONE
     Route: 065
  6. PEG-INTERFERON ALFA 2A [Suspect]
     Active Substance: PEGINTERFERON ALFA-2A
     Indication: CHRONIC HEPATITIS C
     Route: 058
     Dates: start: 20111220
  7. ZOPICLON [Concomitant]
     Active Substance: ZOPICLONE

REACTIONS (8)
  - Cystitis [Recovered/Resolved]
  - Pyrexia [Recovered/Resolved]
  - Pneumonia [Recovered/Resolved]
  - General physical health deterioration [Recovered/Resolved]
  - Dehydration [Recovered/Resolved]
  - Leukopenia [Recovered/Resolved]
  - Pyrexia [Recovered/Resolved]
  - Nausea [Recovered/Resolved]

NARRATIVE: CASE EVENT DATE: 20111230
